FAERS Safety Report 7897411-9 (Version None)
Quarter: 2011Q4

REPORT INFORMATION
  Report Type: 
  Country: None (occurrence: None)
  Receive Date: 20111107
  Receipt Date: 20111027
  Transmission Date: 20120403
  Serious: Yes (Hospitalization)
  Sender: FDA-Public Use
  Company Number: US-JNJFOC-20111012211

PATIENT
  Sex: Female
  Weight: 20.41 kg

DRUGS (4)
  1. REMICADE [Suspect]
     Indication: COLITIS ULCERATIVE
     Dosage: RECEIVED MAXIMUM DOSE OFF-LABEL AT AGE FOUR
     Route: 042
     Dates: start: 20080701, end: 20091001
  2. PERIACTIN [Concomitant]
     Indication: WEIGHT INCREASED
  3. REMICADE [Suspect]
     Route: 042
     Dates: start: 20091001, end: 20110701
  4. PREVACID [Concomitant]
     Indication: GASTROINTESTINAL DISORDER

REACTIONS (2)
  - ADVERSE EVENT [None]
  - COLECTOMY TOTAL [None]
